FAERS Safety Report 13769702 (Version 1)
Quarter: 2017Q3

REPORT INFORMATION
  Report Type: Spontaneous
  Country: FI (occurrence: FI)
  Receive Date: 20170719
  Receipt Date: 20170719
  Transmission Date: 20171127
  Serious: Yes (Other)
  Sender: FDA-Public Use
  Company Number: FI-PFIZER INC-2988229

PATIENT
  Age: 75 Year
  Sex: Male
  Weight: 72 kg

DRUGS (11)
  1. OXALIPLATIN. [Suspect]
     Active Substance: OXALIPLATIN
     Indication: OESOPHAGEAL ADENOCARCINOMA
     Dosage: 215 MG, FREQ: 1 WEEK; INTERVAL: 3.
     Route: 041
     Dates: start: 20150521, end: 20150521
  2. SOMAC [Concomitant]
     Active Substance: PANTOPRAZOLE SODIUM
     Indication: DYSPEPSIA
     Dosage: 40 MG, 1X1, REGULARLY
     Route: 048
  3. DEXAMETASON /00016001/ [Concomitant]
     Indication: NAUSEA
     Dosage: 9 MG, 1X1
     Route: 048
     Dates: start: 20150521
  4. KLEXANE [Concomitant]
     Active Substance: ENOXAPARIN
     Indication: ATRIAL FIBRILLATION
     Dosage: 40 MG, 1X1, REGULARLY
     Route: 058
  5. TAMSUMIN [Concomitant]
     Active Substance: TAMSULOSIN
     Indication: BENIGN PROSTATIC HYPERPLASIA
     Dosage: 0.4 MG, 1X1, REGULARLY
     Route: 048
  6. CAPECITABINE. [Concomitant]
     Active Substance: CAPECITABINE
     Indication: OESOPHAGEAL ADENOCARCINOMA
     Dosage: 500 MG, 2+2
     Route: 048
     Dates: start: 20150521, end: 20150611
  7. EPIRUBICINE [Concomitant]
     Active Substance: EPIRUBICIN
     Indication: OESOPHAGEAL ADENOCARCINOMA
     Dosage: 80 MG, UNK
     Route: 042
     Dates: start: 20150521
  8. GRANISETRON [Concomitant]
     Active Substance: GRANISETRON
     Indication: NAUSEA
     Dosage: 2 MG, 1X1
     Route: 048
     Dates: start: 20150521
  9. AMLODIPINE [Concomitant]
     Active Substance: AMLODIPINE BESYLATE
     Indication: HYPERTENSION
     Dosage: 10 MG, 1X1, REGULARLY
     Route: 048
  10. OXALIPLATIN. [Suspect]
     Active Substance: OXALIPLATIN
     Dosage: 215 MG, FREQ: 1 WEEK; INTERVAL: 3.
     Route: 041
     Dates: start: 20150521, end: 20150521
  11. LOSARTAN. [Concomitant]
     Active Substance: LOSARTAN
     Indication: HYPERTENSION
     Dosage: 100 MG, 1X1, REGULARLY
     Route: 048

REACTIONS (4)
  - Sensation of foreign body [Recovered/Resolved]
  - Dyspnoea [Recovered/Resolved]
  - Chest discomfort [Recovered/Resolved]
  - Cough [Unknown]

NARRATIVE: CASE EVENT DATE: 20150521
